FAERS Safety Report 9127300 (Version 1)
Quarter: 2013Q1

REPORT INFORMATION
  Report Type: Spontaneous
  Country: US (occurrence: US)
  Receive Date: 20130122
  Receipt Date: 20130122
  Transmission Date: 20140127
  Serious: No
  Sender: FDA-Public Use
  Company Number: US-009507513-1301USA009643

PATIENT
  Age: 40 Year
  Sex: Female

DRUGS (3)
  1. SAPHRIS [Suspect]
     Indication: BIPOLAR DISORDER
     Dosage: 5 MG, QD
     Route: 060
  2. TRAZODONE HYDROCHLORIDE [Concomitant]
  3. DEPAKOTE [Concomitant]

REACTIONS (1)
  - Urticaria [Unknown]
